FAERS Safety Report 17457076 (Version 2)
Quarter: 2020Q1

REPORT INFORMATION
  Report Type: Spontaneous
  Country: US (occurrence: US)
  Receive Date: 20200225
  Receipt Date: 20200324
  Transmission Date: 20200409
  Serious: Yes (Other)
  Sender: FDA-Public Use
  Company Number: US-SA-2020SA046212

PATIENT
  Age: 46 Year
  Sex: Female
  Weight: 73 kg

DRUGS (8)
  1. BACMIN [Concomitant]
     Active Substance: MINERALS\VITAMINS
  2. AUBAGIO [Suspect]
     Active Substance: TERIFLUNOMIDE
     Indication: MULTIPLE SCLEROSIS
     Dosage: 14 MG, QD
     Route: 048
     Dates: start: 20180630
  3. XANAX [Concomitant]
     Active Substance: ALPRAZOLAM
  4. TEMAZEPAM. [Concomitant]
     Active Substance: TEMAZEPAM
  5. TOPIRAMATE. [Concomitant]
     Active Substance: TOPIRAMATE
  6. WELLBUTRIN [Concomitant]
     Active Substance: BUPROPION HYDROCHLORIDE
  7. PHENTERMINE. [Concomitant]
     Active Substance: PHENTERMINE
  8. LISINOPRIL. [Concomitant]
     Active Substance: LISINOPRIL
     Dosage: UNK

REACTIONS (2)
  - Tumefactive multiple sclerosis [Unknown]
  - Multiple sclerosis relapse [Unknown]

NARRATIVE: CASE EVENT DATE: 202002
